FAERS Safety Report 9111983 (Version 1)
Quarter: 2013Q1

REPORT INFORMATION
  Report Type: Spontaneous
  Country: US (occurrence: US)
  Receive Date: 20130219
  Receipt Date: 20130219
  Transmission Date: 20140127
  Serious: No
  Sender: FDA-Public Use
  Company Number: US-BRISTOL-MYERS SQUIBB COMPANY-17051954

PATIENT
  Age: 50 Year
  Sex: Female
  Weight: 90.7 kg

DRUGS (5)
  1. ABATACEPT SUBQ INJECTION 125MG/ML [Suspect]
     Indication: RHEUMATOID ARTHRITIS
     Route: 058
     Dates: start: 20120308
  2. MULTIVITAMIN [Concomitant]
  3. VITAMIN D3 [Concomitant]
  4. FOLIC ACID [Concomitant]
  5. FLAXSEED OIL [Concomitant]

REACTIONS (1)
  - Weight increased [Not Recovered/Not Resolved]
